FAERS Safety Report 5621766-9 (Version None)
Quarter: 2008Q1

REPORT INFORMATION
  Report Type: 
  Country: None (occurrence: None)
  Receive Date: 20080211
  Receipt Date: 20080130
  Transmission Date: 20080703
  Serious: Yes (Other)
  Sender: FDA-Public Use
  Company Number: PHBS2008US01528

PATIENT
  Age: 37 Year
  Sex: Female

DRUGS (3)
  1. MYCOPHENOLIC ACID [Suspect]
     Indication: HEART TRANSPLANT
  2. TACROLIMUS [Concomitant]
     Indication: HEART TRANSPLANT
  3. PREDNISONE TAB [Concomitant]
     Indication: HEART TRANSPLANT

REACTIONS (5)
  - ALOPECIA [None]
  - DYSPLASIA [None]
  - HAIR DISORDER [None]
  - MADAROSIS [None]
  - RASH PAPULAR [None]
